FAERS Safety Report 15869791 (Version 1)
Quarter: 2019Q1

REPORT INFORMATION
  Report Type: Spontaneous
  Country: US (occurrence: US)
  Receive Date: 20190125
  Receipt Date: 20190125
  Transmission Date: 20190417
  Serious: No
  Sender: FDA-Public Use
  Company Number: US-TEIKOKU PHARMA USA-TPU2019-00029

PATIENT
  Sex: Female

DRUGS (1)
  1. LIDODERM [Suspect]
     Active Substance: LIDOCAINE
     Indication: ARTHRITIS
     Dosage: APPLY ONE PATCH ON LEFT KNEE FOR TWELVE HOURS ON, AND TWELVE HOURS OFF
     Route: 061

REACTIONS (1)
  - Drug ineffective for unapproved indication [Unknown]
